FAERS Safety Report 5941916-4 (Version None)
Quarter: 2008Q4

REPORT INFORMATION
  Report Type: 
  Country: None (occurrence: None)
  Receive Date: 20081103
  Receipt Date: 20081023
  Transmission Date: 20090506
  Serious: Yes (Hospitalization)
  Sender: FDA-Public Use
  Company Number: 2008BI028483

PATIENT
  Age: 41 Year
  Sex: Female

DRUGS (2)
  1. TYSABRI [Suspect]
     Indication: MULTIPLE SCLEROSIS
     Dosage: 300 MG;QM;IV
     Route: 042
     Dates: start: 20080826, end: 20080923
  2. COPAXONE [Concomitant]

REACTIONS (4)
  - DIARRHOEA [None]
  - INFLUENZA [None]
  - MIGRAINE [None]
  - VOMITING [None]
